FAERS Safety Report 18665048 (Version 1)
Quarter: 2020Q4

REPORT INFORMATION
  Report Type: Spontaneous
  Country: DE (occurrence: DE)
  Receive Date: 20201225
  Receipt Date: 20201225
  Transmission Date: 20210114
  Serious: Yes (Other)
  Sender: FDA-Public Use
  Company Number: NVSC2020DE337226

PATIENT
  Age: 64 Year
  Sex: Male

DRUGS (10)
  1. PEMBROLIZUMAB. [Suspect]
     Active Substance: PEMBROLIZUMAB
     Indication: LUNG NEOPLASM MALIGNANT
     Dosage: 200 MG, TIW (200MG, REPEAT DAY 21, MAINTENANCE THERAPY)
     Route: 065
     Dates: start: 202001
  2. PEMETREXED DISODIUM [Suspect]
     Active Substance: PEMETREXED DISODIUM
     Dosage: UNK (80% OF DOSE 1, MAINTENANCE THERAPY)
     Route: 042
     Dates: start: 202001
  3. DOCETAXEL. [Suspect]
     Active Substance: DOCETAXEL
     Indication: LUNG NEOPLASM MALIGNANT
     Dosage: 1 UNK, TIW (75MG/M2 D1, REPEAT D 21)
     Route: 042
     Dates: start: 202004
  4. NINTEDANIB [Suspect]
     Active Substance: NINTEDANIB
     Dosage: UNK (MAINTENANCE THERAPY)
     Route: 048
     Dates: start: 202008
  5. CARBOPLATIN. [Suspect]
     Active Substance: CARBOPLATIN
     Dosage: 1 UNK, TIW (AUC5 DAY1, REPEAT DAY 21)
     Route: 042
     Dates: start: 201908
  6. CARBOPLATIN. [Suspect]
     Active Substance: CARBOPLATIN
     Indication: LUNG NEOPLASM MALIGNANT
     Dosage: 1 UNK, TIW (80% OF DOSE 1)
     Route: 042
     Dates: start: 201910
  7. PEMETREXED DISODIUM [Suspect]
     Active Substance: PEMETREXED DISODIUM
     Dosage: 1 UNK, TIW (80% OF DOSE 1)
     Route: 042
     Dates: start: 201910
  8. PEMETREXED DISODIUM [Suspect]
     Active Substance: PEMETREXED DISODIUM
     Indication: LUNG NEOPLASM MALIGNANT
     Dosage: 500 MG/M2, TIW (500MG/M2 DAY1, REPEAT DAY21)
     Route: 042
     Dates: start: 201908
  9. PEMBROLIZUMAB. [Suspect]
     Active Substance: PEMBROLIZUMAB
     Dosage: 200 MG, TIW (200 MG, REPEAT DAY 21, CYCLES 1-4)
     Route: 042
     Dates: start: 201908
  10. NINTEDANIB [Suspect]
     Active Substance: NINTEDANIB
     Indication: LUNG NEOPLASM MALIGNANT
     Dosage: 400 MG, QD (200MG, TWICE DAILY, EXCEPT ON CX DAYS)
     Route: 048
     Dates: start: 202004

REACTIONS (3)
  - Malignant neoplasm progression [Unknown]
  - Mucosal inflammation [Unknown]
  - Fatigue [Unknown]

NARRATIVE: CASE EVENT DATE: 2020
